FAERS Safety Report 9656109 (Version 1)
Quarter: 2013Q4

REPORT INFORMATION
  Report Type: Report from Study
  Country: NL (occurrence: NL)
  Receive Date: 20131030
  Receipt Date: 20131030
  Transmission Date: 20140711
  Serious: Yes (Death, Other)
  Sender: FDA-Public Use
  Company Number: PHHY2013NL122185

PATIENT
  Sex: Female

DRUGS (4)
  1. ZOMETA [Suspect]
     Indication: BREAST CANCER METASTATIC
     Dosage: 4 MG/ 100ML, ONCE EVERY 4 WEEKS
     Route: 042
  2. ZOMETA [Suspect]
     Dosage: 4 MG/ 100ML, ONCE EVERY 4 WEEKS
     Dates: start: 20130225
  3. ZOMETA [Suspect]
     Dosage: 4 MG/ 100ML, ONCE EVERY 4 WEEKS
     Dates: start: 20130912
  4. ZOMETA [Suspect]
     Dosage: 4 MG/ 100ML, ONCE EVERY 4 WEEKS
     Dates: start: 20131011

REACTIONS (2)
  - Death [Fatal]
  - Terminal state [Unknown]
